FAERS Safety Report 7662408 (Version 3)
Quarter: 2013Q4

REPORT INFORMATION
  Report Type: Spontaneous
  Country: US (occurrence: US)
  Receive Date: 20101110
  Receipt Date: 20131031
  Transmission Date: 20140711
  Serious: Yes (Other)
  Sender: FDA-Public Use
  Company Number: US-BAYER-201039755NA

PATIENT
  Age: 26 Year
  Sex: Female
  Weight: 117.91 kg

DRUGS (8)
  1. YAZ [Suspect]
     Indication: MENSTRUAL CYCLE MANAGEMENT
     Dosage: UNK UNK, UNK
     Route: 048
     Dates: start: 2006, end: 2009
  2. YAZ [Suspect]
     Indication: ORAL CONTRACEPTION
     Dosage: UNK
     Dates: start: 2007, end: 200901
  3. YASMIN [Suspect]
     Indication: CONTRACEPTION
     Dosage: UNK
     Dates: start: 2007, end: 2007
  4. YASMIN [Suspect]
     Indication: MENSTRUATION IRREGULAR
  5. LISINOPRIL [Concomitant]
     Indication: BLOOD PRESSURE MANAGEMENT
     Dosage: UNK
     Dates: start: 2008
  6. LEVOTHYROXINE [Concomitant]
     Indication: THYROID HORMONE REPLACEMENT THERAPY
     Dosage: UNK
     Dates: start: 2002
  7. AVAPRO [Concomitant]
     Dosage: 150 MG, UNK
     Route: 048
  8. PREVACID [Concomitant]
     Dosage: 30 MG, UNK
     Route: 048

REACTIONS (6)
  - Gallbladder disorder [Unknown]
  - Gallbladder pain [Unknown]
  - Post cholecystectomy syndrome [Unknown]
  - Gastrointestinal disorder [Unknown]
  - Biliary dyskinesia [None]
  - Cholecystitis chronic [None]
